FAERS Safety Report 4365045-9 (Version None)
Quarter: 2004Q2

REPORT INFORMATION
  Report Type: 
  Country: None (occurrence: None)
  Receive Date: 20040521
  Receipt Date: 20040510
  Transmission Date: 20050107
  Serious: No
  Sender: FDA-Public Use
  Company Number: 04P-167-0260464-00

PATIENT
  Age: 64 Year
  Sex: Female

DRUGS (7)
  1. HUMIRA [Suspect]
     Indication: RHEUMATOID ARTHRITIS
     Dosage: 40 MG, 1 IN 2 WK, SUBCUTANEOUS
     Route: 058
  2. RISEDRONATE SODIUM [Concomitant]
  3. PREDNISOLONE [Concomitant]
  4. ACETAMINOPHEN [Concomitant]
  5. ZOPICLONE [Concomitant]
  6. LANSOPRAZOLE [Concomitant]
  7. LEKOVIT CA [Concomitant]

REACTIONS (2)
  - PALPITATIONS [None]
  - PHOTOSENSITIVITY REACTION [None]
